FAERS Safety Report 6435087-8 (Version None)
Quarter: 2009Q4

REPORT INFORMATION
  Report Type: 
  Country: None (occurrence: None)
  Receive Date: 20091110
  Receipt Date: 20091029
  Transmission Date: 20100525
  Serious: Yes (Death)
  Sender: FDA-Public Use
  Company Number: CA-PFIZER INC-2009218199

PATIENT
  Age: 73 Year
  Sex: Female
  Weight: 66 kg

DRUGS (13)
  1. SUNITINIB MALATE [Suspect]
     Indication: MALIGNANT NEOPLASM OF ISLETS OF LANGERHANS
     Dosage: 25 MG, 1X/DAY
     Route: 048
     Dates: start: 20090424, end: 20090521
  2. SALBUTAMOL [Concomitant]
     Indication: ASTHMA
     Dosage: UNK
     Route: 055
     Dates: start: 20080101
  3. FLOVENT [Concomitant]
     Indication: ASTHMA
     Dosage: UNK
     Route: 055
     Dates: start: 20080101
  4. OXAZEPAM [Concomitant]
     Indication: ANXIETY
     Dosage: 7.5 MG, AS NEEDED
     Route: 048
     Dates: start: 20080101
  5. SANDOSTATIN [Concomitant]
     Indication: PROPHYLAXIS AGAINST DIARRHOEA
     Dosage: 60 MG, MONTHLY
     Route: 030
     Dates: start: 20080620
  6. LASIX [Concomitant]
     Indication: DYSPNOEA
     Dosage: 200 MG, AS NEEDED
     Route: 048
     Dates: start: 20080620
  7. TRAMADOL [Concomitant]
     Indication: ABDOMINAL PAIN UPPER
     Dosage: UNK
     Route: 048
     Dates: start: 20081010
  8. TRAMADOL [Concomitant]
     Dosage: UNK
  9. TRAMADOL HYDROCHLORIDE AND ACETAMINOPHEN [Concomitant]
     Indication: PAIN
     Dosage: 325 MG, EVERY 6-8 HOURS AS NEEDED
     Route: 048
     Dates: start: 20090223
  10. K-DUR [Concomitant]
     Indication: PROPHYLAXIS
     Dosage: 20 MEQ, 1X/DAY
     Route: 048
     Dates: start: 20080620
  11. DEXAMETHASONE [Concomitant]
     Indication: ASTHMA
     Dosage: UNK
     Route: 048
     Dates: start: 20080523
  12. CELECOXIB [Concomitant]
     Indication: ARTHRALGIA
     Dosage: 200 MG, 1X/DAY
     Route: 048
     Dates: start: 20090426
  13. TYLENOL [Concomitant]
     Indication: ARTHRALGIA
     Dosage: 500 MG, AS NEEDED
     Route: 048
     Dates: start: 20090426

REACTIONS (1)
  - DEATH [None]
